FAERS Safety Report 11419596 (Version 2)
Quarter: 2015Q4

REPORT INFORMATION
  Report Type: Spontaneous
  Country: US (occurrence: US)
  Receive Date: 20150820
  Receipt Date: 20151205
  Transmission Date: 20160304
  Serious: No
  Sender: FDA-Public Use
  Company Number: PHEH2015US010243

PATIENT
  Sex: Female

DRUGS (1)
  1. COSENTYX [Suspect]
     Active Substance: SECUKINUMAB
     Indication: PSORIASIS
     Route: 065
     Dates: start: 2015

REACTIONS (3)
  - Blood calcium increased [Unknown]
  - Liver function test abnormal [Unknown]
  - Inappropriate schedule of drug administration [Unknown]
